FAERS Safety Report 4368585-1 (Version None)
Quarter: 2004Q2

REPORT INFORMATION
  Report Type: 
  Country: None (occurrence: None)
  Receive Date: 20040528
  Receipt Date: 20040517
  Transmission Date: 20050107
  Serious: Yes (Life-Threatening, Hospitalization)
  Sender: FDA-Public Use
  Company Number: 2004SE01753

PATIENT
  Age: 59 Year
  Sex: Female
  Weight: 70 kg

DRUGS (7)
  1. KENZEN [Suspect]
     Indication: HYPERTENSION
     Dosage: 8 MG QD PO
     Route: 048
     Dates: start: 20040226, end: 20040303
  2. FLUDROCORTISONE ACETATE [Concomitant]
  3. SERETIDE MITE [Concomitant]
  4. VENTOLIN [Concomitant]
  5. VASTAREL [Concomitant]
  6. HYDROCORTISONE [Concomitant]
  7. LEVOTHYROXINE SODIUM [Concomitant]

REACTIONS (13)
  - ABDOMINAL PAIN [None]
  - ADRENAL INSUFFICIENCY [None]
  - ADRENOCORTICAL INSUFFICIENCY ACUTE [None]
  - BLOOD POTASSIUM INCREASED [None]
  - CONVULSION [None]
  - DIARRHOEA [None]
  - DRUG INEFFECTIVE [None]
  - EPILEPSY [None]
  - HEADACHE [None]
  - HYPERADRENALISM [None]
  - HYPONATRAEMIA [None]
  - POLYDIPSIA [None]
  - POLYURIA [None]
